FAERS Safety Report 14698627 (Version 1)
Quarter: 2018Q1

REPORT INFORMATION
  Report Type: Spontaneous
  Country: GB (occurrence: GB)
  Receive Date: 20180330
  Receipt Date: 20180330
  Transmission Date: 20180509
  Serious: Yes (Hospitalization, Other)
  Sender: FDA-Public Use
  Company Number: GB-ACCORD-064907

PATIENT
  Age: 50 Year
  Sex: Female

DRUGS (3)
  1. DEXAMETHASONE. [Concomitant]
     Active Substance: DEXAMETHASONE
     Indication: BREAST CANCER RECURRENT
     Dosage: CHEMOTHERAPY REGIME
     Route: 048
  2. GEMCITABINE/GEMCITABINE HYDROCHLORIDE [Suspect]
     Active Substance: GEMCITABINE\GEMCITABINE HYDROCHLORIDE
     Indication: BREAST CANCER RECURRENT
     Dosage: PALLIATIVE CHEMOTHERAPY EIGHT DAYS PREVIOUSLY
  3. CARBOPLATIN. [Suspect]
     Active Substance: CARBOPLATIN
     Indication: BREAST CANCER RECURRENT

REACTIONS (7)
  - Thrombocytopenia [Unknown]
  - Epistaxis [Unknown]
  - Conjunctival haemorrhage [Recovered/Resolved]
  - Off label use [Unknown]
  - Pancytopenia [Unknown]
  - Drug intolerance [Unknown]
  - Necrotising scleritis [Recovering/Resolving]
